FAERS Safety Report 17188440 (Version 1)
Quarter: 2019Q4

REPORT INFORMATION
  Report Type: Spontaneous
  Country: TR (occurrence: TR)
  Receive Date: 20191222
  Receipt Date: 20191222
  Transmission Date: 20200122
  Serious: Yes (Hospitalization, Other)
  Sender: FDA-Public Use
  Company Number: TR-ALEXION PHARMACEUTICALS INC.-A201918381

PATIENT
  Age: 1 Year
  Sex: Male
  Weight: 14 kg

DRUGS (6)
  1. SOLIRIS [Suspect]
     Active Substance: ECULIZUMAB
     Indication: HAEMOLYTIC URAEMIC SYNDROME
  2. AMPHOTERICIN B. [Concomitant]
     Active Substance: AMPHOTERICIN B
     Indication: CANDIDA SEPSIS
     Route: 065
  3. MEROPENEM. [Concomitant]
     Active Substance: MEROPENEM
     Indication: CANDIDA SEPSIS
     Route: 065
  4. SOLIRIS [Suspect]
     Active Substance: ECULIZUMAB
     Indication: ATYPICAL HAEMOLYTIC URAEMIC SYNDROME
     Dosage: 600 MG, SINGLE
     Route: 042
     Dates: start: 20191104, end: 20191104
  5. AMOXICILLIN. [Concomitant]
     Active Substance: AMOXICILLIN
     Indication: CANDIDA SEPSIS
     Route: 065
  6. VANCOMYCIN [Concomitant]
     Active Substance: VANCOMYCIN
     Indication: CANDIDA SEPSIS
     Route: 065

REACTIONS (7)
  - Hyperbilirubinaemia [Unknown]
  - Candida sepsis [Unknown]
  - Hepatic function abnormal [Unknown]
  - Hepatitis cholestatic [Unknown]
  - Cholangitis [Unknown]
  - Cholestasis [Unknown]
  - Jaundice [Unknown]

NARRATIVE: CASE EVENT DATE: 20191105
